FAERS Safety Report 18860838 (Version 3)
Quarter: 2021Q3

REPORT INFORMATION
  Report Type: Report from Study
  Country: US (occurrence: US)
  Receive Date: 20210208
  Receipt Date: 20210920
  Transmission Date: 20211014
  Serious: No
  Sender: FDA-Public Use
  Company Number: NVSC2021US021934

PATIENT
  Age: 31 Year
  Sex: Male

DRUGS (1)
  1. COSENTYX [Suspect]
     Active Substance: SECUKINUMAB
     Indication: PSORIASIS
     Dosage: 300 MG, (ONCE WEEKLY FOR 5 DAYS, THEN ONCE)
     Route: 058

REACTIONS (4)
  - Psoriasis [Unknown]
  - Therapeutic response shortened [Unknown]
  - Incorrect dose administered [Unknown]
  - Administration site dryness [Unknown]

NARRATIVE: CASE EVENT DATE: 20210628
